FAERS Safety Report 4303353-8 (Version None)
Quarter: 2004Q1

REPORT INFORMATION
  Report Type: 
  Country: None (occurrence: None)
  Receive Date: 20040223
  Receipt Date: 20040212
  Transmission Date: 20041129
  Serious: Yes (Hospitalization, Other)
  Sender: FDA-Public Use
  Company Number: BE-JNJFOC-20040103329

PATIENT
  Age: 80 Year
  Sex: Male

DRUGS (6)
  1. PREPULSID (CISAPRIDE) TABLETS [Suspect]
     Indication: IMPAIRED GASTRIC EMPTYING
     Dosage: 10 MG;  10 MG
     Dates: start: 20030101
  2. RYTHMONORM (PROPAFENONE HYDROCHLORIDE) [Concomitant]
  3. LANOXIN [Concomitant]
  4. PLAVIX [Concomitant]
  5. ZOCOR [Concomitant]
  6. THYROXINE (LEVOTHYROXINE SODIUM) [Concomitant]

REACTIONS (2)
  - BLOOD PRESSURE DECREASED [None]
  - MALAISE [None]
